FAERS Safety Report 6899637-X (Version None)
Quarter: 2010Q3

REPORT INFORMATION
  Report Type: 
  Country: None (occurrence: None)
  Receive Date: 20100708
  Receipt Date: 20100412
  Transmission Date: 20110219
  Serious: Yes (Other)
  Sender: FDA-Public Use
  Company Number: 2010046086

PATIENT
  Age: 36 Year
  Sex: Male
  Weight: 95.2 kg

DRUGS (2)
  1. CHANTIX [Suspect]
     Indication: SMOKING CESSATION THERAPY
     Dosage: 0.5 MG, 1X/DAY, ORAL : 1 MG, 2X/DAY
     Route: 048
     Dates: end: 20100411
  2. CHANTIX [Suspect]
     Indication: SMOKING CESSATION THERAPY
     Dosage: 0.5 MG, 1X/DAY, ORAL : 1 MG, 2X/DAY
     Route: 048
     Dates: start: 20100201

REACTIONS (4)
  - ABNORMAL DREAMS [None]
  - DIZZINESS [None]
  - FEAR [None]
  - SUICIDE ATTEMPT [None]
